FAERS Safety Report 5894634-5 (Version None)
Quarter: 2008Q3

REPORT INFORMATION
  Report Type: 
  Country: None (occurrence: None)
  Receive Date: 20080924
  Receipt Date: 20080918
  Transmission Date: 20090109
  Serious: Yes (Death)
  Sender: FDA-Public Use
  Company Number: DE-BAYER-200821061GPV

PATIENT
  Sex: Male

DRUGS (1)
  1. NEXAVAR [Suspect]
     Indication: DRUG USE FOR UNKNOWN INDICATION
     Route: 048

REACTIONS (10)
  - ANOREXIA [None]
  - ASCITES [None]
  - DEATH [None]
  - DIARRHOEA [None]
  - DRY MOUTH [None]
  - DYSPHONIA [None]
  - FATIGUE [None]
  - MICTURITION URGENCY [None]
  - PHARYNGEAL ERYTHEMA [None]
  - WEIGHT DECREASED [None]
